FAERS Safety Report 24872236 (Version 2)
Quarter: 2025Q1

REPORT INFORMATION
  Report Type: Spontaneous
  Country: US (occurrence: US)
  Receive Date: 20250122
  Receipt Date: 20250127
  Transmission Date: 20250409
  Serious: Yes (Hospitalization, Other)
  Sender: BRISTOL-MYERS SQUIBB COMPANY
  Company Number: US-BRISTOL-MYERS SQUIBB COMPANY-2025-007468

PATIENT
  Age: 76 Year
  Sex: Female

DRUGS (1)
  1. POMALYST [Suspect]
     Active Substance: POMALIDOMIDE
     Indication: Idiopathic pulmonary fibrosis
     Dosage: TAKE 1 CAPSULE BY MOUTH EVERY MORNING ON DAYS 1-21 OF 28 DAY TREATMENT
     Route: 048

REACTIONS (1)
  - Cardiac failure congestive [Unknown]
